FAERS Safety Report 9010637 (Version 2)
Quarter: 2013Q4

REPORT INFORMATION
  Report Type: Spontaneous
  Country: FR (occurrence: FR)
  Receive Date: 20130109
  Receipt Date: 20131121
  Transmission Date: 20140711
  Serious: Yes (Hospitalization, Other)
  Sender: FDA-Public Use
  Company Number: FR-PFIZER INC-2013007092

PATIENT
  Age: 84 Year
  Sex: Female

DRUGS (15)
  1. ATARAX [Suspect]
     Dosage: 25 MG, DAILY
     Route: 048
     Dates: end: 2012
  2. ZITHROMAX [Suspect]
     Dosage: 250 MG, 1X/DAY
     Dates: start: 20120621, end: 2012
  3. AUGMENTIN [Suspect]
     Indication: ANTIBIOTIC THERAPY
     Dosage: 250 MG, ALTERNATE DAY
     Route: 048
     Dates: start: 201205
  4. ROCEPHINE [Suspect]
     Dosage: UNK
     Dates: start: 201206, end: 201206
  5. TAVANIC [Suspect]
     Indication: LUNG DISORDER
     Dosage: UNK
     Dates: start: 201206, end: 201206
  6. FORTUM [Suspect]
     Indication: PSEUDOMONAS TEST POSITIVE
     Dosage: 6 G, DAILY
     Route: 048
     Dates: start: 201206, end: 20120621
  7. CIFLOX [Suspect]
     Indication: PSEUDOMONAS TEST POSITIVE
     Dosage: 500 MG, 2X/DAY
     Route: 048
     Dates: start: 201206, end: 20120621
  8. COLIMYCINE [Suspect]
     Dosage: 2 MILLIONIU, DAILY
     Route: 055
     Dates: start: 20120621, end: 2012
  9. LASILIX [Suspect]
     Dosage: 40 MG, DAILY
     Dates: end: 2012
  10. ATACAND [Suspect]
     Dosage: 25 MG, 1X/DAY
     Dates: end: 2012
  11. TERBUTALINE SULFATE [Suspect]
     Dosage: UNK
     Route: 055
     Dates: end: 2012
  12. ALTI-IPRATROPIUM [Suspect]
     Dosage: UNK
     Route: 055
     Dates: end: 2012
  13. SERETIDE [Concomitant]
     Dosage: 500 MG, 2X/DAY
  14. FLECAINE [Concomitant]
     Dosage: 50 MG, DAILY
  15. PREVISCAN [Concomitant]
     Dosage: 1 DF, 1X/DAY

REACTIONS (4)
  - Renal failure acute [Recovered/Resolved with Sequelae]
  - Renal tubular necrosis [Recovered/Resolved with Sequelae]
  - Hyperkalaemia [Recovered/Resolved with Sequelae]
  - Hepatitis cholestatic [Not Recovered/Not Resolved]
